FAERS Safety Report 9379725 (Version 1)
Quarter: 2013Q2

REPORT INFORMATION
  Report Type: Spontaneous
  Country: FR (occurrence: None)
  Receive Date: 20130627
  Receipt Date: 20130627
  Transmission Date: 20140414
  Serious: Yes (Other)
  Sender: FDA-Public Use
  Company Number: FK201302157

PATIENT
  Age: 75 Year
  Sex: Female

DRUGS (6)
  1. LEVETIRACETAM [Suspect]
     Indication: EPILEPSY
  2. VALPROATE [Suspect]
     Indication: PRODUCT USED FOR UNKNOWN INDICATION
  3. TRINITRIN (GLYCERYL TRINITRATE) [Concomitant]
  4. PAROXETINE (PAROXETINE) [Concomitant]
  5. ALIMEMAZINE (ALIMEMAZINE) [Concomitant]
  6. BENZODIAZEPINE (BENZODIAZEPINE DERIVATIVES) [Concomitant]

REACTIONS (1)
  - Hypoglycaemia [None]
